FAERS Safety Report 25425305 (Version 1)
Quarter: 2025Q2

REPORT INFORMATION
  Report Type: Spontaneous
  Country: US (occurrence: US)
  Receive Date: 20250611
  Receipt Date: 20250611
  Transmission Date: 20250717
  Serious: No
  Sender: STALLERGENES
  Company Number: US-STALCOR-2025-AER-01069

PATIENT
  Age: 38 Year
  Sex: Female
  Weight: 101.3 kg

DRUGS (12)
  1. CYNODON DACTYLON POLLEN [Suspect]
     Active Substance: CYNODON DACTYLON POLLEN
     Indication: Seasonal allergy
     Route: 058
  2. CYNODON DACTYLON POLLEN [Suspect]
     Active Substance: CYNODON DACTYLON POLLEN
     Route: 058
     Dates: start: 20210817
  3. CAT HAIR [Suspect]
     Active Substance: FELIS CATUS HAIR
     Indication: Allergy to animal
     Route: 058
  4. CAT HAIR [Suspect]
     Active Substance: FELIS CATUS HAIR
     Route: 058
     Dates: start: 20210817
  5. DERMATOPHAGOIDES FARINAE\DERMATOPHAGOIDES PTERONYSSINUS [Suspect]
     Active Substance: DERMATOPHAGOIDES FARINAE\DERMATOPHAGOIDES PTERONYSSINUS
     Indication: Dust allergy
     Route: 058
  6. DERMATOPHAGOIDES FARINAE\DERMATOPHAGOIDES PTERONYSSINUS [Suspect]
     Active Substance: DERMATOPHAGOIDES FARINAE\DERMATOPHAGOIDES PTERONYSSINUS
     Route: 058
     Dates: start: 20210817
  7. JOHNSON GRASS [Suspect]
     Active Substance: SORGHUM HALEPENSE POLLEN
     Indication: Seasonal allergy
     Route: 058
  8. JOHNSON GRASS [Suspect]
     Active Substance: SORGHUM HALEPENSE POLLEN
     Route: 058
     Dates: start: 20210817
  9. AGROSTIS GIGANTEA POLLEN\DACTYLIS GLOMERATA POLLEN\PHLEUM PRATENSE POL [Suspect]
     Active Substance: AGROSTIS GIGANTEA POLLEN\DACTYLIS GLOMERATA POLLEN\PHLEUM PRATENSE POLLEN\POA PRATENSIS POLLEN
     Indication: Seasonal allergy
     Route: 058
  10. AGROSTIS GIGANTEA POLLEN\DACTYLIS GLOMERATA POLLEN\PHLEUM PRATENSE POL [Suspect]
     Active Substance: AGROSTIS GIGANTEA POLLEN\DACTYLIS GLOMERATA POLLEN\PHLEUM PRATENSE POLLEN\POA PRATENSIS POLLEN
     Route: 058
     Dates: start: 20210817
  11. RAGWEED MIXTURE [Suspect]
     Active Substance: AMBROSIA ARTEMISIIFOLIA POLLEN\AMBROSIA BIDENTATA POLLEN\AMBROSIA PSILOSTACHYA POLLEN\AMBROSIA TRIFI
     Indication: Seasonal allergy
     Route: 058
  12. RAGWEED MIXTURE [Suspect]
     Active Substance: AMBROSIA ARTEMISIIFOLIA POLLEN\AMBROSIA BIDENTATA POLLEN\AMBROSIA PSILOSTACHYA POLLEN\AMBROSIA TRIFI
     Route: 058
     Dates: start: 20210817

REACTIONS (3)
  - Urticaria [Unknown]
  - Injection site hypoaesthesia [Recovered/Resolved]
  - Injection site paraesthesia [Recovered/Resolved]

NARRATIVE: CASE EVENT DATE: 20250403
